FAERS Safety Report 18821499 (Version 1)
Quarter: 2021Q1

REPORT INFORMATION
  Report Type: Spontaneous
  Country: DE (occurrence: DE)
  Receive Date: 20210201
  Receipt Date: 20210201
  Transmission Date: 20210419
  Serious: Yes (Hospitalization)
  Sender: FDA-Public Use
  Company Number: DE-PFIZER INC-2021065396

PATIENT
  Age: 43 Year
  Sex: Male
  Weight: 90 kg

DRUGS (4)
  1. LYRICA [Suspect]
     Active Substance: PREGABALIN
     Dosage: 300 MG, AS NEEDED
     Route: 065
     Dates: start: 2011
  2. DOXEPIN [Interacting]
     Active Substance: DOXEPIN
     Dosage: 10 MG, 1X/DAY
     Route: 065
     Dates: start: 2011
  3. ELONTRIL [Interacting]
     Active Substance: BUPROPION HYDROCHLORIDE
     Dosage: 300 MG, 1X/DAY
     Route: 065
     Dates: start: 2011
  4. QUETIAPIN 1A PHARMA [Interacting]
     Active Substance: QUETIAPINE
     Dosage: 150 MG, 1X/DAY
     Route: 065
     Dates: start: 2011

REACTIONS (10)
  - Restlessness [Not Recovered/Not Resolved]
  - Weight increased [Not Recovered/Not Resolved]
  - Tension [Not Recovered/Not Resolved]
  - Erectile dysfunction [Not Recovered/Not Resolved]
  - Dry mouth [Not Recovered/Not Resolved]
  - Pruritus [Not Recovered/Not Resolved]
  - Insomnia [Not Recovered/Not Resolved]
  - Eczema [Not Recovered/Not Resolved]
  - Drug screen positive [Unknown]
  - Drug interaction [Unknown]
